FAERS Safety Report 16608115 (Version 1)
Quarter: 2019Q3

REPORT INFORMATION
  Report Type: Spontaneous
  Country: CH (occurrence: CH)
  Receive Date: 20190722
  Receipt Date: 20190722
  Transmission Date: 20191004
  Serious: Yes (Life-Threatening, Hospitalization)
  Sender: FDA-Public Use
  Company Number: CH-ENDO PHARMACEUTICALS INC-2019-106334

PATIENT
  Age: 12 Year
  Sex: Male

DRUGS (3)
  1. HYDROCORTISONE. [Suspect]
     Active Substance: HYDROCORTISONE
     Indication: ANAPHYLACTIC REACTION
     Dosage: 2MG/KG, UNKNOWN
     Route: 042
  2. ADRENALIN [Suspect]
     Active Substance: EPINEPHRINE
     Indication: ANAPHYLACTIC REACTION
     Dosage: 0.1 MG/KG, UNKNOWN
     Route: 042
  3. CLEMASTINE [Suspect]
     Active Substance: CLEMASTINE
     Indication: ANAPHYLACTIC REACTION
     Dosage: 0.05 MG/KG, UNKNOWN
     Route: 042

REACTIONS (5)
  - Cardiopulmonary failure [Recovered/Resolved]
  - Pulmonary oedema [Recovered/Resolved]
  - Myocardial ischaemia [Recovered/Resolved]
  - Accidental overdose [Recovered/Resolved]
  - Incorrect route of product administration [Unknown]
